FAERS Safety Report 21793216 (Version 1)
Quarter: 2022Q4

REPORT INFORMATION
  Report Type: Spontaneous
  Country: US (occurrence: US)
  Receive Date: 20221229
  Receipt Date: 20221229
  Transmission Date: 20230113
  Serious: No
  Sender: FDA-Public Use
  Company Number: US-SA-SAC20221228000806

PATIENT
  Sex: Female

DRUGS (1)
  1. AUBAGIO [Suspect]
     Active Substance: TERIFLUNOMIDE

REACTIONS (4)
  - Vision blurred [Unknown]
  - Dizziness [Unknown]
  - Balance disorder [Unknown]
  - Fall [Unknown]
